FAERS Safety Report 24416282 (Version 1)
Quarter: 2024Q4

REPORT INFORMATION
  Report Type: Spontaneous
  Country: US (occurrence: None)
  Receive Date: 20241008
  Receipt Date: 20241008
  Transmission Date: 20250115
  Serious: No
  Sender: Public
  Company Number: None

PATIENT
  Age: 66 Year
  Sex: Male

DRUGS (1)
  1. SOTALOL HYDROCHLORIDE [Suspect]
     Active Substance: SOTALOL HYDROCHLORIDE
     Dates: start: 20240501, end: 20240530

REACTIONS (1)
  - Atrial fibrillation [None]

NARRATIVE: CASE EVENT DATE: 20240519
